FAERS Safety Report 4336900-0 (Version None)
Quarter: 2004Q2

REPORT INFORMATION
  Report Type: 
  Country: None (occurrence: None)
  Receive Date: 20040407
  Receipt Date: 20040323
  Transmission Date: 20050107
  Serious: Yes (Other)
  Sender: FDA-Public Use
  Company Number: USA040258356

PATIENT
  Age: 40 Year
  Sex: Male

DRUGS (3)
  1. FORTEO [Suspect]
     Indication: OSTEOPOROSIS
     Dosage: 20 UG/DAY
     Dates: start: 20030301
  2. REMICADE [Concomitant]
  3. MERCAPTOPURINE [Concomitant]

REACTIONS (3)
  - BURNS SECOND DEGREE [None]
  - BURNS THIRD DEGREE [None]
  - UNEXPECTED THERAPEUTIC DRUG EFFECT [None]
